FAERS Safety Report 8769638 (Version 2)
Quarter: 2013Q3

REPORT INFORMATION
  Report Type: Spontaneous
  Country: US (occurrence: US)
  Receive Date: 20120905
  Receipt Date: 20130718
  Transmission Date: 20140515
  Serious: Yes (Hospitalization)
  Sender: FDA-Public Use
  Company Number: US-JNJFOC-20120813953

PATIENT
  Age: 55 Year
  Sex: Male
  Weight: 123 kg

DRUGS (4)
  1. XARELTO [Suspect]
     Indication: CEREBROVASCULAR ACCIDENT PROPHYLAXIS
     Route: 048
  2. XARELTO [Suspect]
     Indication: ATRIAL FIBRILLATION
     Route: 048
  3. MULTAQ [Concomitant]
  4. DILTIAZEM [Concomitant]

REACTIONS (3)
  - Prothrombin time prolonged [Unknown]
  - Blood creatinine increased [Unknown]
  - International normalised ratio increased [Unknown]
